FAERS Safety Report 13237754 (Version 1)
Quarter: 2017Q1

REPORT INFORMATION
  Report Type: Spontaneous
  Country: US (occurrence: US)
  Receive Date: 20170216
  Receipt Date: 20170216
  Transmission Date: 20170428
  Serious: Yes (Other)
  Sender: FDA-Public Use
  Company Number: US-009507513-1702USA006345

PATIENT
  Age: 46 Year
  Sex: Female
  Weight: 63.49 kg

DRUGS (5)
  1. UBIQUINONES (UNSPECIFIED) [Concomitant]
  2. BELSOMRA [Suspect]
     Active Substance: SUVOREXANT
     Indication: INSOMNIA
     Dosage: UNK
     Route: 048
     Dates: start: 20160403
  3. TURMERIC [Concomitant]
     Active Substance: TURMERIC
  4. XANAX [Concomitant]
     Active Substance: ALPRAZOLAM
  5. VITAMIN B (UNSPECIFIED) [Concomitant]

REACTIONS (6)
  - Hallucination [Not Recovered/Not Resolved]
  - Cough [Not Recovered/Not Resolved]
  - Hallucination, auditory [Not Recovered/Not Resolved]
  - Sleep terror [Not Recovered/Not Resolved]
  - Sleep paralysis [Not Recovered/Not Resolved]
  - Confusional state [Not Recovered/Not Resolved]

NARRATIVE: CASE EVENT DATE: 20160403
